FAERS Safety Report 12873822 (Version 1)
Quarter: 2016Q4

REPORT INFORMATION
  Report Type: Spontaneous
  Country: US (occurrence: US)
  Receive Date: 20161021
  Receipt Date: 20161021
  Transmission Date: 20170207
  Serious: No
  Sender: FDA-Public Use
  Company Number: US-ALLERGAN-1647038

PATIENT
  Sex: Male

DRUGS (2)
  1. LIPASE 20,000USP;AMYLASE 109,000USP;PROTEASE 68,000USP CAP [Suspect]
     Active Substance: AMYLASE\LIPASE\PROTEASE
     Indication: PANCREATIC CYST
     Dosage: UNK UNK, UNKNOWN
     Route: 065
  2. LIPASE 20,000USP;AMYLASE 109,000USP;PROTEASE 68,000USP CAP [Suspect]
     Active Substance: AMYLASE\LIPASE\PROTEASE
     Indication: PAIN

REACTIONS (1)
  - Pain [Unknown]
